FAERS Safety Report 24449927 (Version 2)
Quarter: 2024Q4

REPORT INFORMATION
  Report Type: Spontaneous
  Country: AU (occurrence: AU)
  Receive Date: 20241017
  Receipt Date: 20241024
  Transmission Date: 20250114
  Serious: Yes (Other)
  Sender: PFIZER
  Company Number: AU-PFIZER INC-PV202400133872

PATIENT
  Age: 85 Year
  Sex: Male

DRUGS (1)
  1. TAFAMIDIS [Suspect]
     Active Substance: TAFAMIDIS
     Dosage: UNK

REACTIONS (1)
  - Endocarditis [Unknown]
